FAERS Safety Report 5996273-4 (Version None)
Quarter: 2008Q4

REPORT INFORMATION
  Report Type: 
  Country: None (occurrence: None)
  Receive Date: 20081212
  Receipt Date: 20081006
  Transmission Date: 20090506
  Serious: No
  Sender: FDA-Public Use
  Company Number: US-ABBOTT-08P-163-0480052-00

PATIENT
  Sex: Female
  Weight: 83.536 kg

DRUGS (14)
  1. HUMIRA [Suspect]
     Indication: CROHN'S DISEASE
     Route: 058
     Dates: start: 20080501
  2. MESALAMINE [Concomitant]
     Indication: CROHN'S DISEASE
     Dosage: 400MG X 3 TABLETS TWICE DAILY
     Route: 048
  3. AZATHIOPRINE [Concomitant]
     Indication: CROHN'S DISEASE
     Dosage: 50MG X 3 TABLETS DAILY IN PM
     Route: 048
  4. GABAPENTIN [Concomitant]
     Indication: RESTLESS LEGS SYNDROME
     Dosage: 300MG X 2 CAPSULES DAILY AT BEDTIME
     Route: 048
     Dates: start: 20060101
  5. OMEPRAZOLE [Concomitant]
     Indication: GASTRIC DISORDER
     Dosage: 20MG X 2 TABLETS DAILY IN AM
     Route: 048
     Dates: start: 20060101
  6. OMEPRAZOLE [Concomitant]
     Indication: CROHN'S DISEASE
  7. TRAMADOL HCL [Concomitant]
     Indication: ABDOMINAL PAIN
     Dosage: 50MG X 1-2 TABLETS AS NEEDED
     Route: 048
     Dates: start: 20020101
  8. TRAMADOL HCL [Concomitant]
  9. HYDROCODONE BITARTRATE + ACETAMINOPHEN [Concomitant]
     Indication: CROHN'S DISEASE
     Dosage: 5/500MG ONCE EVERY 6-8 HOURS AS NEEDED
     Route: 048
     Dates: start: 20020101
  10. HYDROCODONE BITARTRATE + ACETAMINOPHEN [Concomitant]
  11. CYANOCOBALAMIN [Concomitant]
     Indication: VITAMIN SUPPLEMENTATION
     Route: 048
  12. FOLIC ACID [Concomitant]
     Indication: VITAMIN SUPPLEMENTATION
     Route: 048
  13. MULTIVITAMIN AND MINERAL [Concomitant]
     Indication: VITAMIN SUPPLEMENTATION
     Route: 048
  14. GLUCOSAMINE [Concomitant]
     Indication: ARTHROPATHY
     Dosage: 1500MG X 2 TABLETS DAILY
     Route: 048

REACTIONS (1)
  - ACCIDENTAL EXPOSURE [None]
